FAERS Safety Report 6150186-6 (Version None)
Quarter: 2009Q2

REPORT INFORMATION
  Report Type: 
  Country: None (occurrence: None)
  Receive Date: 20090408
  Receipt Date: 20090408
  Transmission Date: 20091009
  Serious: Yes (Other)
  Sender: FDA-Public Use
  Company Number: None

PATIENT
  Sex: Female
  Weight: 90.2658 kg

DRUGS (1)
  1. BUDEPRION SR (GENERIC) [Suspect]
     Indication: DEPRESSION
     Dosage: 150 MG ONCE PO BID 047
     Route: 048
     Dates: start: 20090105, end: 20090216

REACTIONS (3)
  - ANXIETY [None]
  - DRUG INEFFECTIVE [None]
  - THERAPEUTIC RESPONSE UNEXPECTED WITH DRUG SUBSTITUTION [None]
